FAERS Safety Report 5095415-5 (Version None)
Quarter: 2006Q3

REPORT INFORMATION
  Report Type: 
  Country: None (occurrence: None)
  Receive Date: 20060830
  Receipt Date: 20060818
  Transmission Date: 20061208
  Serious: Yes (Other)
  Sender: FDA-Public Use
  Company Number: 29943

PATIENT
  Sex: Female

DRUGS (18)
  1. AMIODARONE HCL [Suspect]
     Dosage: IV
     Route: 042
     Dates: start: 20060817
  2. FUROSEMIDE [Concomitant]
  3. INSULIN [Concomitant]
  4. MAGNESIUM OXIDE [Concomitant]
  5. SOLU-MEDROL [Concomitant]
  6. MORPHINE [Concomitant]
  7. NITROGLYCERIN [Concomitant]
  8. PROTONIX [Concomitant]
  9. PARXETINE [Concomitant]
  10. POTASSIUM CHLORIDE [Concomitant]
  11. PROMETHAZINE [Concomitant]
  12. LISINOPRIL [Concomitant]
  13. CEFTAZIDIME [Concomitant]
  14. AZITHROMYCIN [Concomitant]
  15. CLONIDINE [Concomitant]
  16. VITAMIN B-12 [Concomitant]
  17. DIGOXIN [Concomitant]
  18. DILTIAZEM HCL [Concomitant]

REACTIONS (1)
  - PROTHROMBIN TIME PROLONGED [None]
